FAERS Safety Report 11011060 (Version 1)
Quarter: 2015Q2

REPORT INFORMATION
  Report Type: Spontaneous
  Country: AU (occurrence: AU)
  Receive Date: 20150410
  Receipt Date: 20150410
  Transmission Date: 20150821
  Serious: Yes (Other)
  Sender: FDA-Public Use
  Company Number: PHHY2015AU017685

PATIENT
  Age: 42 Year
  Sex: Male

DRUGS (15)
  1. ALLOPURINOL. [Concomitant]
     Active Substance: ALLOPURINOL
     Indication: PRODUCT USED FOR UNKNOWN INDICATION
     Dosage: 300 MG, QD
     Route: 048
  2. HYDREA [Concomitant]
     Active Substance: HYDROXYUREA
     Dosage: 1 G, QD
     Route: 048
     Dates: start: 20140714
  3. ASPIRIN. [Concomitant]
     Active Substance: ASPIRIN
     Indication: PRODUCT USED FOR UNKNOWN INDICATION
     Dosage: 50 MG, QD
     Route: 065
     Dates: start: 20140704
  4. HYDREA [Concomitant]
     Active Substance: HYDROXYUREA
     Dosage: 2 G, TID
     Route: 048
     Dates: start: 20140710
  5. ENOXAPARIN [Concomitant]
     Active Substance: ENOXAPARIN
     Indication: PRODUCT USED FOR UNKNOWN INDICATION
     Dosage: 40 MG, UNK
     Route: 058
  6. TAZOCIN [Concomitant]
     Active Substance: PIPERACILLIN SODIUM\TAZOBACTAM SODIUM
     Indication: SEPSIS
     Route: 065
  7. GENTAMICIN. [Concomitant]
     Active Substance: GENTAMICIN
     Indication: SEPSIS
     Route: 065
  8. CEFTRIAXONE. [Concomitant]
     Active Substance: CEFTRIAXONE
     Indication: SEPSIS
     Route: 065
  9. HIDROXIUREA [Concomitant]
     Active Substance: HYDROXYUREA
     Dosage: 1 G, QD
     Route: 048
  10. IMATINIB [Suspect]
     Active Substance: IMATINIB
     Indication: CHRONIC MYELOID LEUKAEMIA
     Dosage: 400 MG, QD
     Route: 065
     Dates: start: 20140710
  11. THIOGUANINE [Concomitant]
     Active Substance: THIOGUANINE
     Indication: PRODUCT USED FOR UNKNOWN INDICATION
     Route: 065
     Dates: start: 20140710
  12. THIOGUANINE [Concomitant]
     Active Substance: THIOGUANINE
     Dosage: 40 MG, UNK
     Route: 065
     Dates: start: 20140714
  13. IMATINIB [Suspect]
     Active Substance: IMATINIB
     Dosage: 600 MG, QD
     Route: 065
     Dates: start: 201501, end: 201501
  14. HIDROXIUREA [Concomitant]
     Active Substance: HYDROXYUREA
     Indication: PRODUCT USED FOR UNKNOWN INDICATION
     Dosage: 2 G, TID
     Route: 048
  15. HYDREA [Concomitant]
     Active Substance: HYDROXYUREA
     Indication: PRODUCT USED FOR UNKNOWN INDICATION
     Dosage: 1 G, BID
     Route: 048
     Dates: start: 20140704

REACTIONS (16)
  - Vision blurred [Not Recovered/Not Resolved]
  - Platelet function test abnormal [Unknown]
  - Malignant neoplasm progression [Unknown]
  - Vitreous haemorrhage [Unknown]
  - Cytopenia [Unknown]
  - Gastrointestinal haemorrhage [Unknown]
  - Treatment failure [Unknown]
  - Retinal neovascularisation [Unknown]
  - Chronic myeloid leukaemia [Unknown]
  - Hyperplasia [Unknown]
  - Upper respiratory tract infection [Unknown]
  - Thrombocytosis [Unknown]
  - Disseminated intravascular coagulation [Unknown]
  - Retinal haemorrhage [Unknown]
  - Erythropoiesis abnormal [Unknown]
  - Retinal ischaemia [Unknown]

NARRATIVE: CASE EVENT DATE: 201412
